FAERS Safety Report 7772100-X (Version None)
Quarter: 2011Q3

REPORT INFORMATION
  Report Type: 
  Country: None (occurrence: None)
  Receive Date: 20110922
  Receipt Date: 20101215
  Transmission Date: 20111222
  Serious: No
  Sender: FDA-Public Use
  Company Number: US-ASTRAZENECA-2010SE59300

PATIENT
  Age: 50 Year
  Sex: Female
  Weight: 108.9 kg

DRUGS (4)
  1. SEROQUEL [Suspect]
     Route: 048
     Dates: start: 20100901, end: 20100901
  2. SEROQUEL [Suspect]
     Route: 048
     Dates: start: 20100901
  3. SEROQUEL [Suspect]
     Route: 048
     Dates: start: 20100901
  4. SEROQUEL [Suspect]
     Indication: POST-TRAUMATIC STRESS DISORDER
     Route: 048
     Dates: start: 20100901

REACTIONS (1)
  - HYPERSOMNIA [None]
